FAERS Safety Report 6192063-0 (Version None)
Quarter: 2009Q2

REPORT INFORMATION
  Report Type: 
  Country: None (occurrence: None)
  Receive Date: 20090515
  Receipt Date: 20090513
  Transmission Date: 20091009
  Serious: Yes (Other)
  Sender: FDA-Public Use
  Company Number: US-ASTRAZENECA-2009UW03755

PATIENT
  Age: 56 Year
  Sex: Male
  Weight: 115.7 kg

DRUGS (6)
  1. SEROQUEL [Suspect]
     Indication: ANXIETY
     Route: 048
     Dates: start: 20020101, end: 20070101
  2. PROZAC [Concomitant]
     Dates: start: 19930101
  3. VALIUM [Concomitant]
     Dates: start: 19910101
  4. TRICOR [Concomitant]
     Dates: start: 19970101
  5. EFFEXOR [Concomitant]
  6. KLONOPIN [Concomitant]

REACTIONS (2)
  - MUSCULOSKELETAL DISORDER [None]
  - TYPE 2 DIABETES MELLITUS [None]
